FAERS Safety Report 6178153-7 (Version None)
Quarter: 2009Q2

REPORT INFORMATION
  Report Type: 
  Country: None (occurrence: None)
  Receive Date: 20090430
  Receipt Date: 20090421
  Transmission Date: 20091009
  Serious: Yes (Death)
  Sender: FDA-Public Use
  Company Number: GXKR2009GB04891

PATIENT
  Age: 47 Year
  Sex: Male

DRUGS (3)
  1. HYDROCORTISONE [Suspect]
     Dosage: 100 MG, INTRAMUSCULAR
     Route: 030
     Dates: start: 20060712
  2. METOCLOPRAMIDE [Suspect]
     Dosage: 10 MG, INTRAMUSCULAR
     Route: 030
     Dates: start: 20060713
  3. GLUCOSE (GLUCOSE) [Concomitant]

REACTIONS (8)
  - CARDIAC ARREST [None]
  - EJECTION FRACTION DECREASED [None]
  - GENERAL PHYSICAL HEALTH DETERIORATION [None]
  - HYPERTENSION [None]
  - HYPOGLYCAEMIA [None]
  - HYPOTENSION [None]
  - PHAEOCHROMOCYTOMA [None]
  - PULMONARY OEDEMA [None]
